APPROVED DRUG PRODUCT: ATENOLOL
Active Ingredient: ATENOLOL
Strength: 50MG
Dosage Form/Route: TABLET;ORAL
Application: A072304 | Product #003 | TE Code: AB
Applicant: AIPING PHARMACEUTICAL INC
Approved: Jul 18, 1988 | RLD: No | RS: No | Type: RX